FAERS Safety Report 5559232-1 (Version None)
Quarter: 2007Q4

REPORT INFORMATION
  Report Type: 
  Country: None (occurrence: None)
  Receive Date: 20071130
  Receipt Date: 20070816
  Transmission Date: 20080405
  Serious: No
  Sender: FDA-Public Use
  Company Number: US200708003749

PATIENT
  Age: 69 Year
  Sex: Male

DRUGS (3)
  1. BYETTA [Suspect]
     Dosage: SUBCUTANEOUS
     Route: 058
  2. ACTOS [Concomitant]
  3. LEVEMIR (INSULIN DETEMIR) [Concomitant]

REACTIONS (2)
  - BLOOD GLUCOSE DECREASED [None]
  - BLOOD GLUCOSE INCREASED [None]
